FAERS Safety Report 18099879 (Version 3)
Quarter: 2020Q4

REPORT INFORMATION
  Report Type: Spontaneous
  Country: US (occurrence: US)
  Receive Date: 20200731
  Receipt Date: 20201211
  Transmission Date: 20210113
  Serious: Yes (Other)
  Sender: FDA-Public Use
  Company Number: US-GILEAD-2020-0486601

PATIENT
  Age: 41 Year
  Sex: Female
  Weight: 108.84 kg

DRUGS (25)
  1. ARIPIPRAZOLE. [Concomitant]
     Active Substance: ARIPIPRAZOLE
  2. LEVOTHYROXINE. [Concomitant]
     Active Substance: LEVOTHYROXINE
  3. LISINOPRIL. [Concomitant]
     Active Substance: LISINOPRIL
  4. LYRICA [Concomitant]
     Active Substance: PREGABALIN
  5. PERCOCET [OXYCODONE HYDROCHLORIDE;OXYCODONE TEREPHTHALATE;PARACETAMOL] [Concomitant]
     Active Substance: ACETAMINOPHEN\OXYCODONE HYDROCHLORIDE\OXYCODONE TEREPHTHALATE
  6. OMEPRAZOLE. [Concomitant]
     Active Substance: OMEPRAZOLE
  7. ALPRAZOLAM. [Concomitant]
     Active Substance: ALPRAZOLAM
  8. BUPROPION. [Concomitant]
     Active Substance: BUPROPION
  9. CLONIDINE. [Concomitant]
     Active Substance: CLONIDINE
  10. TOPIRAMATE. [Concomitant]
     Active Substance: TOPIRAMATE
  11. CYMBALTA [Concomitant]
     Active Substance: DULOXETINE HYDROCHLORIDE
  12. ESTRADIOL. [Concomitant]
     Active Substance: ESTRADIOL
  13. NABUMETONE. [Concomitant]
     Active Substance: NABUMETONE
  14. XANAX [Concomitant]
     Active Substance: ALPRAZOLAM
  15. TRAZODONE [Concomitant]
     Active Substance: TRAZODONE HYDROCHLORIDE
  16. GENVOYA [Concomitant]
     Active Substance: COBICISTAT\ELVITEGRAVIR\EMTRICITABINE\TENOFOVIR ALAFENAMIDE FUMARATE
  17. DULOXETINE. [Concomitant]
     Active Substance: DULOXETINE
  18. MONTELUKAST [Concomitant]
     Active Substance: MONTELUKAST SODIUM
  19. VITAMIN D2 [Concomitant]
     Active Substance: ERGOCALCIFEROL
  20. DICYCLOMINE CO [Concomitant]
  21. PREGABALIN. [Concomitant]
     Active Substance: PREGABALIN
  22. ATRIPLA [Suspect]
     Active Substance: EFAVIRENZ\EMTRICITABINE\TENOFOVIR DISOPROXIL FUMARATE
     Indication: HIV INFECTION
     Dosage: UNK
     Route: 048
     Dates: start: 2007, end: 20160916
  23. HYDROCODONE [Concomitant]
     Active Substance: HYDROCODONE
  24. FLUTICASONE. [Concomitant]
     Active Substance: FLUTICASONE
  25. RIZATRIPTAN. [Concomitant]
     Active Substance: RIZATRIPTAN

REACTIONS (13)
  - Spinal fracture [Not Recovered/Not Resolved]
  - Pain [Not Recovered/Not Resolved]
  - Osteopenia [Not Recovered/Not Resolved]
  - Anxiety [Not Recovered/Not Resolved]
  - Anhedonia [Not Recovered/Not Resolved]
  - Depression [Not Recovered/Not Resolved]
  - Foot fracture [Not Recovered/Not Resolved]
  - Emotional distress [Not Recovered/Not Resolved]
  - Ankle fracture [Not Recovered/Not Resolved]
  - Renal impairment [Unknown]
  - Psychiatric symptom [Not Recovered/Not Resolved]
  - Chronic kidney disease [Not Recovered/Not Resolved]
  - Stress [Not Recovered/Not Resolved]

NARRATIVE: CASE EVENT DATE: 20111005
